FAERS Safety Report 7831594-1 (Version None)
Quarter: 2011Q4

REPORT INFORMATION
  Report Type: 
  Country: None (occurrence: None)
  Receive Date: 20111021
  Receipt Date: 20111017
  Transmission Date: 20120403
  Serious: Yes (Other)
  Sender: FDA-Public Use
  Company Number: CA-TEVA-305550USA

PATIENT
  Age: 18 Year
  Sex: Female

DRUGS (1)
  1. PLAN B [Suspect]
     Indication: POST COITAL CONTRACEPTION
     Dosage: 2 TB (2 X 0.75MG)
     Route: 048
     Dates: start: 20111017, end: 20111017

REACTIONS (3)
  - SWELLING FACE [None]
  - DIZZINESS [None]
  - THROAT TIGHTNESS [None]
